FAERS Safety Report 11026382 (Version 1)
Quarter: 2015Q2

REPORT INFORMATION
  Report Type: Spontaneous
  Country: US (occurrence: None)
  Receive Date: 20150413
  Receipt Date: 20150413
  Transmission Date: 20150821
  Serious: Yes (Life-Threatening, Hospitalization, Disabling)
  Sender: FDA-Public Use
  Company Number: None

PATIENT
  Age: 59 Year
  Sex: Female
  Weight: 81.65 kg

DRUGS (1)
  1. LYRICA [Suspect]
     Active Substance: PREGABALIN
     Indication: NEUROPATHY PERIPHERAL
     Route: 048
     Dates: start: 20060901, end: 20140122

REACTIONS (15)
  - Tremor [None]
  - Muscle spasms [None]
  - Heart rate increased [None]
  - Memory impairment [None]
  - Bradyphrenia [None]
  - Speech disorder [None]
  - Crying [None]
  - Suicidal ideation [None]
  - Dysphemia [None]
  - Dyspnoea [None]
  - Bipolar disorder [None]
  - Quality of life decreased [None]
  - Drug dependence [None]
  - Blood pressure abnormal [None]
  - Anger [None]

NARRATIVE: CASE EVENT DATE: 20140122
